FAERS Safety Report 17023813 (Version 4)
Quarter: 2020Q3

REPORT INFORMATION
  Report Type: Spontaneous
  Country: JP (occurrence: JP)
  Receive Date: 20191113
  Receipt Date: 20200924
  Transmission Date: 20201102
  Serious: Yes (Other)
  Sender: FDA-Public Use
  Company Number: JP-ROCHE-2445513

PATIENT
  Age: 67 Year
  Sex: Female

DRUGS (22)
  1. AZANIN [Suspect]
     Active Substance: AZATHIOPRINE
     Indication: PRODUCT USED FOR UNKNOWN INDICATION
     Route: 048
     Dates: end: 20190723
  2. AZANIN [Suspect]
     Active Substance: AZATHIOPRINE
     Route: 048
     Dates: end: 20200205
  3. CODEINE PHOSPHATE [Concomitant]
     Active Substance: CODEINE PHOSPHATE
     Route: 048
     Dates: start: 20190709
  4. PREDNISOLONE. [Concomitant]
     Active Substance: PREDNISOLONE
     Route: 065
  5. LANSOPRAZOLE. [Concomitant]
     Active Substance: LANSOPRAZOLE
     Route: 048
     Dates: start: 20190201
  6. EDIROL [Concomitant]
     Active Substance: ELDECALCITOL
     Route: 048
  7. AZANIN [Suspect]
     Active Substance: AZATHIOPRINE
     Route: 048
     Dates: end: 20190625
  8. AZANIN [Suspect]
     Active Substance: AZATHIOPRINE
     Route: 048
     Dates: end: 20191016
  9. AZANIN [Suspect]
     Active Substance: AZATHIOPRINE
     Route: 048
     Dates: end: 20190907
  10. BAKTAR [Concomitant]
     Active Substance: SULFAMETHOXAZOLE\TRIMETHOPRIM
     Route: 048
     Dates: start: 20190206
  11. TAKEPRON [Concomitant]
     Active Substance: LANSOPRAZOLE
     Route: 048
     Dates: start: 20190131
  12. AZANIN [Suspect]
     Active Substance: AZATHIOPRINE
     Route: 048
     Dates: end: 20190709
  13. ALLERMIST [Concomitant]
     Active Substance: FLUTICASONE FUROATE
     Route: 045
     Dates: start: 20190516
  14. MESNA. [Concomitant]
     Active Substance: MESNA
     Route: 042
     Dates: start: 20190206, end: 20190410
  15. AZANIN [Suspect]
     Active Substance: AZATHIOPRINE
     Route: 048
     Dates: end: 20190806
  16. CYCLOPHOSPHAMIDE. [Suspect]
     Active Substance: CYCLOPHOSPHAMIDE
     Indication: PRODUCT USED FOR UNKNOWN INDICATION
     Route: 065
  17. CARBOCISTEINE [Concomitant]
     Active Substance: CARBOCYSTEINE
     Dates: start: 20190901, end: 20190907
  18. MAGNESIUM OXIDE. [Concomitant]
     Active Substance: MAGNESIUM OXIDE
     Route: 048
  19. GRACEVIT [Concomitant]
     Active Substance: SITAFLOXACIN
     Dates: start: 20190129
  20. VALIXA [Suspect]
     Active Substance: VALGANCICLOVIR
     Indication: CYTOMEGALOVIRUS TEST POSITIVE
     Dosage: 2 DOSAGE FORM
     Route: 048
     Dates: end: 20190401
  21. AZANIN [Suspect]
     Active Substance: AZATHIOPRINE
     Route: 048
     Dates: end: 20190901
  22. ARASENA?A [Concomitant]
     Active Substance: VIDARABINE
     Route: 061
     Dates: start: 20190131, end: 20190204

REACTIONS (14)
  - Pneumonia bacterial [Recovered/Resolved]
  - Amylase increased [Recovered/Resolved]
  - Epistaxis [Recovered/Resolved]
  - Coating in mouth [Recovered/Resolved]
  - Oral herpes [Recovered/Resolved]
  - Cytomegalovirus test positive [Recovered/Resolved]
  - Hyperglycaemia [Recovered/Resolved]
  - Gastroenteritis viral [Recovered/Resolved]
  - Liver function test abnormal [Recovered/Resolved]
  - Pneumomediastinum [Recovered/Resolved]
  - Hypertension [Not Recovered/Not Resolved]
  - Weight decreased [Not Recovered/Not Resolved]
  - Dental caries [Not Recovered/Not Resolved]
  - Insomnia [Not Recovered/Not Resolved]

NARRATIVE: CASE EVENT DATE: 20190207
